FAERS Safety Report 23887555 (Version 1)
Quarter: 2024Q2

REPORT INFORMATION
  Report Type: Report from Study
  Country: US (occurrence: US)
  Receive Date: 20240523
  Receipt Date: 20240523
  Transmission Date: 20240715
  Serious: Yes (Hospitalization)
  Sender: FDA-Public Use
  Company Number: US-ABBVIE-5770723

PATIENT
  Sex: Female

DRUGS (1)
  1. RINVOQ [Suspect]
     Active Substance: UPADACITINIB
     Indication: Rheumatoid arthritis
     Route: 048
     Dates: start: 20230411, end: 2024

REACTIONS (3)
  - Facial paralysis [Recovered/Resolved]
  - Cerebrovascular accident [Recovered/Resolved]
  - Muscular weakness [Recovered/Resolved]
